FAERS Safety Report 4960797-9 (Version None)
Quarter: 2006Q2

REPORT INFORMATION
  Report Type: 
  Country: None (occurrence: None)
  Receive Date: 20060403
  Receipt Date: 20060328
  Transmission Date: 20061013
  Serious: Yes (Other)
  Sender: FDA-Public Use
  Company Number: ES-BRISTOL-MYERS SQUIBB COMPANY-13328059

PATIENT
  Age: 76 Year
  Sex: Male
  Weight: 73 kg

DRUGS (6)
  1. SUSTIVA [Suspect]
     Indication: HIV INFECTION
     Route: 048
     Dates: start: 20050124
  2. ACETYLSALICYLIC ACID SRT [Concomitant]
     Indication: ANTIPLATELET THERAPY
     Route: 048
     Dates: start: 20041108
  3. TORSEMIDE [Concomitant]
     Indication: CARDIAC FAILURE
     Route: 048
     Dates: start: 20041108
  4. ENALAPRIL MALEATE [Concomitant]
     Indication: CARDIAC FAILURE
     Route: 048
     Dates: start: 20041108
  5. LORAZEPAM [Concomitant]
     Indication: SEDATIVE THERAPY
     Route: 048
     Dates: start: 20041108
  6. OMEPRAZOLE [Concomitant]
     Indication: GASTRIC DISORDER
     Route: 048
     Dates: start: 20041108

REACTIONS (1)
  - DIABETES MELLITUS [None]
